FAERS Safety Report 20721186 (Version 1)
Quarter: 2022Q2

REPORT INFORMATION
  Report Type: Spontaneous
  Country: JP (occurrence: JP)
  Receive Date: 20220418
  Receipt Date: 20220418
  Transmission Date: 20220721
  Serious: Yes (Hospitalization, Other)
  Sender: FDA-Public Use
  Company Number: JP-DSJP-DSJ-2022-112640

PATIENT
  Age: 88 Year
  Sex: Female

DRUGS (1)
  1. EDOXABAN TOSYLATE [Suspect]
     Active Substance: EDOXABAN TOSYLATE
     Indication: Atrial fibrillation
     Dosage: UNK
     Route: 048

REACTIONS (4)
  - Dehydration [Recovering/Resolving]
  - Renal impairment [Recovering/Resolving]
  - Epistaxis [Recovering/Resolving]
  - Chromaturia [Recovering/Resolving]
